FAERS Safety Report 7354238-4 (Version None)
Quarter: 2011Q1

REPORT INFORMATION
  Report Type: 
  Country: None (occurrence: None)
  Receive Date: 20110316
  Receipt Date: 20110308
  Transmission Date: 20110831
  Serious: No
  Sender: FDA-Public Use
  Company Number: US-BIOGENIDEC-2011BI008911

PATIENT
  Sex: Male

DRUGS (1)
  1. TYSABRI [Suspect]
     Indication: MULTIPLE SCLEROSIS
     Route: 042
     Dates: start: 20090618

REACTIONS (8)
  - AMNESIA [None]
  - PAIN IN EXTREMITY [None]
  - FEELING ABNORMAL [None]
  - FATIGUE [None]
  - HEADACHE [None]
  - BEDRIDDEN [None]
  - GAIT DISTURBANCE [None]
  - ARTHRALGIA [None]
